FAERS Safety Report 8766150 (Version 3)
Quarter: 2013Q3

REPORT INFORMATION
  Report Type: Spontaneous
  Country: GB (occurrence: GB)
  Receive Date: 20120904
  Receipt Date: 20130905
  Transmission Date: 20140515
  Serious: Yes (Other)
  Sender: FDA-Public Use
  Company Number: GB-009507513-2011SP028508

PATIENT
  Age: 21 Year
  Sex: Female

DRUGS (2)
  1. NEXPLANON [Suspect]
     Indication: CONTRACEPTION
     Dosage: UNK
     Route: 059
     Dates: start: 20110614, end: 20111122
  2. NEXPLANON [Suspect]
     Dosage: UNK
     Route: 059
     Dates: start: 20110126, end: 20110614

REACTIONS (8)
  - Abortion spontaneous complete [Unknown]
  - Device difficult to use [Unknown]
  - Device kink [Recovered/Resolved]
  - Pregnancy with implant contraceptive [Recovered/Resolved]
  - Implant site pain [Not Recovered/Not Resolved]
  - Amenorrhoea [Unknown]
  - Device breakage [Recovered/Resolved]
  - Haemorrhage [Unknown]
